FAERS Safety Report 7197010-0 (Version None)
Quarter: 2010Q4

REPORT INFORMATION
  Report Type: 
  Country: None (occurrence: None)
  Receive Date: 20101224
  Receipt Date: 20101220
  Transmission Date: 20110411
  Serious: Yes (Disabling, Other)
  Sender: FDA-Public Use
  Company Number: US-ELI_LILLY_AND_COMPANY-US201012005141

PATIENT
  Sex: Female

DRUGS (6)
  1. HUMULIN R [Suspect]
     Indication: DIABETES MELLITUS
     Dosage: 5 U, EACH MORNING
     Dates: start: 19790101
  2. HUMULIN R [Suspect]
     Dosage: 5 U, EACH EVENING
     Dates: start: 19790101
  3. HUMULIN N [Suspect]
     Indication: DIABETES MELLITUS
     Dosage: 30 U, EACH MORNING
     Dates: start: 19790101
  4. HUMULIN N [Suspect]
     Dosage: 10 U, EACH EVENING
     Dates: start: 19790101
  5. AGGRENOX [Concomitant]
  6. LEXAPRO [Concomitant]

REACTIONS (4)
  - CEREBROVASCULAR ACCIDENT [None]
  - DYSGRAPHIA [None]
  - FRUSTRATION [None]
  - HEMIPARESIS [None]
